FAERS Safety Report 7129970-8 (Version None)
Quarter: 2010Q4

REPORT INFORMATION
  Report Type: 
  Country: None (occurrence: None)
  Receive Date: 20101130
  Receipt Date: 20101122
  Transmission Date: 20110411
  Serious: Yes (Hospitalization, Other)
  Sender: FDA-Public Use
  Company Number: CA-ABBOTT-10P-028-0687329-00

PATIENT
  Sex: Female

DRUGS (2)
  1. HUMIRA [Suspect]
     Indication: RHEUMATOID ARTHRITIS
     Route: 058
     Dates: start: 20051103
  2. HUMIRA [Suspect]

REACTIONS (4)
  - ARTHRITIS [None]
  - BLADDER PROLAPSE [None]
  - MALAISE [None]
  - NAUSEA [None]
